FAERS Safety Report 6443035-X (Version None)
Quarter: 2009Q4

REPORT INFORMATION
  Report Type: 
  Country: None (occurrence: None)
  Receive Date: 20091117
  Receipt Date: 20091106
  Transmission Date: 20100525
  Serious: Yes (Hospitalization)
  Sender: FDA-Public Use
  Company Number: DE-AMGEN-US374036

PATIENT
  Sex: Female
  Weight: 87.1 kg

DRUGS (10)
  1. ENBREL [Suspect]
     Indication: RHEUMATOID ARTHRITIS
     Route: 058
     Dates: start: 20090520
  2. CALCIMAGON [Concomitant]
     Route: 065
  3. IBUPROFEN [Concomitant]
     Route: 048
  4. ISOZID [Concomitant]
     Route: 048
     Dates: end: 20090101
  5. TILIDINE [Concomitant]
     Route: 065
  6. ENALAPRIL MALEATE [Concomitant]
     Route: 065
  7. VERAPAMIL [Concomitant]
     Route: 065
  8. XIPAMIDE [Concomitant]
     Route: 065
  9. METEX [Concomitant]
     Route: 058
     Dates: start: 20080401
  10. CORTISONE [Concomitant]
     Route: 048

REACTIONS (4)
  - INTERVERTEBRAL DISC PROTRUSION [None]
  - OSTEOCHONDROSIS [None]
  - PNEUMONIA [None]
  - SUBILEUS [None]
